FAERS Safety Report 20239171 (Version 1)
Quarter: 2021Q4

REPORT INFORMATION
  Report Type: Report from Study
  Country: US (occurrence: US)
  Receive Date: 20211228
  Receipt Date: 20211228
  Transmission Date: 20220303
  Serious: Yes (Hospitalization)
  Sender: FDA-Public Use
  Company Number: US-JAZZ-2021-US-022712

PATIENT
  Sex: Male

DRUGS (4)
  1. XYREM [Suspect]
     Active Substance: SODIUM OXYBATE
     Indication: Narcolepsy
     Dosage: 1 GRAM, BID
     Route: 048
     Dates: start: 202005, end: 202102
  2. XYREM [Suspect]
     Active Substance: SODIUM OXYBATE
     Dosage: 1.5 GRAM, BID
     Route: 048
     Dates: start: 202103, end: 202106
  3. XYREM [Suspect]
     Active Substance: SODIUM OXYBATE
     Dosage: 2 GRAM, FIRST DOSE
     Route: 048
     Dates: start: 202107
  4. XYREM [Suspect]
     Active Substance: SODIUM OXYBATE
     Dosage: 1.5 GRAM, SECOND DOSE
     Route: 048
     Dates: start: 202107

REACTIONS (1)
  - Hospitalisation [Unknown]
